FAERS Safety Report 9431844 (Version 1)
Quarter: 2013Q3

REPORT INFORMATION
  Report Type: Spontaneous
  Country: JP (occurrence: JP)
  Receive Date: 20130731
  Receipt Date: 20130731
  Transmission Date: 20140515
  Serious: Yes (Disabling, Other)
  Sender: FDA-Public Use
  Company Number: PHHY2013JP080495

PATIENT
  Sex: Male

DRUGS (2)
  1. DIOVAN [Suspect]
     Dosage: 1 DF, UNK
     Route: 048
     Dates: start: 200211
  2. NORVASC [Concomitant]
     Dosage: UNK
     Route: 048

REACTIONS (4)
  - Cerebral haemorrhage [Unknown]
  - Brain injury [Unknown]
  - Hemiparesis [Unknown]
  - Blood pressure fluctuation [Unknown]
